FAERS Safety Report 8102970-7 (Version None)
Quarter: 2012Q1

REPORT INFORMATION
  Report Type: 
  Country: None (occurrence: None)
  Receive Date: 20120201
  Receipt Date: 20120124
  Transmission Date: 20120608
  Serious: Yes (Other)
  Sender: FDA-Public Use
  Company Number: JP-ASTELLAS-2012JP000345

PATIENT
  Sex: Female
  Weight: 50 kg

DRUGS (7)
  1. LANSOPRAZOLE [Concomitant]
     Dosage: UNK
     Route: 065
     Dates: start: 20111116
  2. ALENDRONATE SODIUM [Concomitant]
     Dosage: UNK
     Route: 065
     Dates: start: 20111116
  3. ASPIRIN [Concomitant]
     Dosage: UNK
     Route: 065
     Dates: start: 20111116
  4. PROGRAF [Suspect]
     Indication: LUPUS NEPHRITIS
     Dosage: 3 MG, UID/QD
     Route: 048
     Dates: start: 20111116, end: 20111221
  5. D ALFA [Concomitant]
     Dosage: UNK
     Route: 065
     Dates: start: 20111116
  6. SULFAMETHOXAZOLE [Suspect]
     Dosage: UNK
     Route: 065
     Dates: start: 20111116, end: 20111215
  7. PREDNISOLONE [Concomitant]
     Dosage: UNK
     Route: 065
     Dates: start: 20111116

REACTIONS (1)
  - BONE MARROW FAILURE [None]
